FAERS Safety Report 4650324-8 (Version None)
Quarter: 2005Q2

REPORT INFORMATION
  Report Type: 
  Country: None (occurrence: None)
  Receive Date: 20050428
  Receipt Date: 20050418
  Transmission Date: 20051028
  Serious: Yes (Hospitalization, Other)
  Sender: FDA-Public Use
  Company Number: 2005021595

PATIENT
  Age: 50 Year
  Sex: Male

DRUGS (2)
  1. BEXTRA [Suspect]
     Indication: SHOULDER PAIN
     Dosage: 20 MG (20 MG, 1 IN 1 D)
  2. SERTRALINE HCL [Concomitant]

REACTIONS (3)
  - DYSPNOEA [None]
  - ERYTHEMA MULTIFORME [None]
  - MYALGIA [None]
